FAERS Safety Report 4867151-9 (Version None)
Quarter: 2005Q4

REPORT INFORMATION
  Report Type: 
  Country: None (occurrence: None)
  Receive Date: 20051228
  Receipt Date: 20051220
  Transmission Date: 20060501
  Serious: Yes (Other)
  Sender: FDA-Public Use
  Company Number: US-ABBOTT-05P-163-0320295-00

PATIENT
  Sex: Male

DRUGS (3)
  1. HUMIRA [Suspect]
     Indication: PSORIASIS
     Route: 058
     Dates: start: 20050201
  2. HUMIRA [Suspect]
     Route: 058
     Dates: start: 20041001, end: 20050201
  3. PSORIATEC [Concomitant]
     Indication: PSORIASIS
     Route: 061
     Dates: start: 20041001, end: 20050201

REACTIONS (2)
  - CHEST PAIN [None]
  - PULMONARY EMBOLISM [None]
